FAERS Safety Report 24026005 (Version 5)
Quarter: 2024Q3

REPORT INFORMATION
  Report Type: Report from Study
  Country: IN (occurrence: IN)
  Receive Date: 20240628
  Receipt Date: 20240902
  Transmission Date: 20241017
  Serious: Yes (Hospitalization)
  Sender: ROCHE
  Company Number: IN-ROCHE-3411656

PATIENT
  Age: 60 Year
  Sex: Female

DRUGS (1)
  1. PHESGO [Suspect]
     Active Substance: HYALURONIDASE-ZZXF\PERTUZUMAB\TRASTUZUMAB
     Indication: Breast cancer
     Dosage: 10TH CYCLE OF PHESGO DOSE ON 27/FEB/2023
     Route: 058
     Dates: start: 20220708

REACTIONS (2)
  - Off label use [Unknown]
  - Metastases to central nervous system [Unknown]
